FAERS Safety Report 6460119-0 (Version None)
Quarter: 2009Q4

REPORT INFORMATION
  Report Type: 
  Country: None (occurrence: None)
  Receive Date: 20091129
  Receipt Date: 20091123
  Transmission Date: 20100525
  Serious: Yes (Death, Life-Threatening, Hospitalization)
  Sender: FDA-Public Use
  Company Number: PHHY2009DE51554

PATIENT
  Sex: Male

DRUGS (13)
  1. LEPONEX [Suspect]
     Dosage: 125 MG/DAY
     Route: 048
     Dates: start: 20071128
  2. LEPONEX [Suspect]
     Dosage: 200 MG/DAY
     Route: 048
     Dates: end: 20080128
  3. LEPONEX [Suspect]
     Dosage: 125MG/DAY
     Dates: end: 20080207
  4. HALDOL [Suspect]
     Dosage: 2 MG EVERY DAY
     Route: 048
     Dates: start: 20071130, end: 20071203
  5. HALDOL [Suspect]
     Dosage: 5 MG EVERY DAY
     Route: 048
     Dates: start: 20071204, end: 20071227
  6. HALDOL [Suspect]
     Dosage: 7.5 MG EVERY DAY
     Route: 048
     Dates: start: 20071228, end: 20080102
  7. LITHIUM CARBONATE [Suspect]
     Dosage: 225 MG EVERY DAY
     Route: 048
     Dates: start: 20071212, end: 20071229
  8. LITHIUM CARBONATE [Suspect]
     Dosage: 450 MG EVERY DAY
     Route: 048
     Dates: start: 20071230, end: 20080102
  9. MIRTAZAPINE [Concomitant]
     Dosage: 15 MG EVERY DAY
     Route: 048
     Dates: start: 20071203, end: 20080102
  10. SAB [Concomitant]
     Dosage: 6 DF EVERY DAY
     Route: 048
     Dates: start: 20071220, end: 20080102
  11. LORAZEPAM [Concomitant]
     Dosage: 1 MG EVERY DAY
     Route: 048
     Dates: start: 20071220, end: 20071231
  12. UBRETID [Concomitant]
     Dosage: 7.5 MG EVERY DAY
     Route: 048
     Dates: start: 20071219, end: 20080102
  13. ZOLPIDEM [Concomitant]
     Dosage: 10 MG EVERY DAY
     Route: 048
     Dates: start: 20071130, end: 20080102

REACTIONS (7)
  - BRADYCARDIA [None]
  - CIRCULATORY COLLAPSE [None]
  - FATIGUE [None]
  - PNEUMONIA [None]
  - PYREXIA [None]
  - RESPIRATORY ARREST [None]
  - RHONCHI [None]
